FAERS Safety Report 18923152 (Version 4)
Quarter: 2021Q1

REPORT INFORMATION
  Report Type: Spontaneous
  Country: US (occurrence: US)
  Receive Date: 20210222
  Receipt Date: 20210324
  Transmission Date: 20210420
  Serious: No
  Sender: FDA-Public Use
  Company Number: US-SA-2021SA049390

PATIENT
  Age: 61 Year
  Sex: Female

DRUGS (1)
  1. LANTUS SOLOSTAR [Suspect]
     Active Substance: INSULIN GLARGINE
     Indication: TYPE 1 DIABETES MELLITUS
     Dosage: 37 IU, QD
     Route: 065
     Dates: start: 202006

REACTIONS (4)
  - Blood glucose increased [Unknown]
  - Device issue [Unknown]
  - Malaise [Unknown]
  - Drug dose omission by device [Unknown]
